FAERS Safety Report 7665085-8 (Version None)
Quarter: 2011Q3

REPORT INFORMATION
  Report Type: 
  Country: None (occurrence: None)
  Receive Date: 20110806
  Receipt Date: 20110216
  Transmission Date: 20111222
  Serious: No
  Sender: FDA-Public Use
  Company Number: US-ABBOTT-11P-163-0705725-00

PATIENT
  Sex: Male
  Weight: 108.96 kg

DRUGS (10)
  1. VITAMIN D [Concomitant]
     Indication: PRODUCT USED FOR UNKNOWN INDICATION
  2. FENOFIBRATE [Concomitant]
     Indication: BLOOD CHOLESTEROL
  3. COZAAR [Concomitant]
     Indication: BLOOD PRESSURE
  4. VITAMIN B1 TAB [Concomitant]
     Indication: PRODUCT USED FOR UNKNOWN INDICATION
  5. BYSTOLIC [Concomitant]
     Indication: BLOOD PRESSURE
  6. TRIAMTERENE [Concomitant]
     Indication: BLOOD PRESSURE
  7. VITAMIN B-12 [Concomitant]
     Indication: PRODUCT USED FOR UNKNOWN INDICATION
  8. GLIMEPIRIDE [Concomitant]
     Indication: BLOOD GLUCOSE
  9. NIASPAN [Suspect]
     Indication: LOW DENSITY LIPOPROTEIN INCREASED
     Dates: start: 20110207
  10. ZETIA [Concomitant]
     Indication: BLOOD CHOLESTEROL

REACTIONS (1)
  - FLUSHING [None]
